FAERS Safety Report 10455537 (Version 1)
Quarter: 2014Q3

REPORT INFORMATION
  Report Type: Spontaneous
  Country: US (occurrence: None)
  Receive Date: 20140815
  Receipt Date: 20140815
  Transmission Date: 20150326
  Serious: No
  Sender: FDA-Public Use
  Company Number: E2007-01686-SPO-US

PATIENT
  Age: 25 Year
  Sex: Female

DRUGS (6)
  1. TRILEPTAL [Concomitant]
     Active Substance: OXCARBAZEPINE
  2. FYCOMPA [Suspect]
     Active Substance: PERAMPANEL
     Indication: DROP ATTACKS
     Route: 048
     Dates: start: 20140411, end: 20140429
  3. DEPAKOTE [Concomitant]
     Active Substance: DIVALPROEX SODIUM
  4. FYCOMPA [Suspect]
     Active Substance: PERAMPANEL
     Indication: CONVULSION
     Route: 048
     Dates: start: 20140411, end: 20140429
  5. ONFI [Concomitant]
     Active Substance: CLOBAZAM
  6. TOPAMAX [Concomitant]
     Active Substance: TOPIRAMATE

REACTIONS (1)
  - Insomnia [None]

NARRATIVE: CASE EVENT DATE: 20140411
